FAERS Safety Report 11079481 (Version 3)
Quarter: 2016Q2

REPORT INFORMATION
  Report Type: Spontaneous
  Country: US (occurrence: US)
  Receive Date: 20150430
  Receipt Date: 20160504
  Transmission Date: 20160815
  Serious: Yes (Other)
  Sender: FDA-Public Use
  Company Number: US-PFIZER INC-2015139049

PATIENT
  Age: 15 Year
  Sex: Female
  Weight: 48 kg

DRUGS (4)
  1. GENOTROPIN MQ [Suspect]
     Active Substance: SOMATROPIN
     Indication: BLOOD GROWTH HORMONE
     Dosage: 1.8 MG, DAILY
     Route: 058
     Dates: start: 20110914, end: 20150305
  2. GENOTROPIN MQ [Suspect]
     Active Substance: SOMATROPIN
     Indication: TURNER^S SYNDROME
     Dosage: 1.1 MG, DAILY
     Route: 058
     Dates: start: 20090120
  3. GENOTROPIN MQ [Suspect]
     Active Substance: SOMATROPIN
     Indication: GONADAL DYSGENESIS
     Dosage: UNK
  4. GENOTROPIN MQ [Suspect]
     Active Substance: SOMATROPIN
     Indication: BODY HEIGHT BELOW NORMAL
     Dosage: 1.6 MG, DAILY
     Route: 058
     Dates: start: 20100316

REACTIONS (1)
  - Limb asymmetry [Unknown]

NARRATIVE: CASE EVENT DATE: 20150209
